FAERS Safety Report 15617794 (Version 6)
Quarter: 2022Q1

REPORT INFORMATION
  Report Type: Report from Study
  Country: US (occurrence: US)
  Receive Date: 20181114
  Receipt Date: 20220225
  Transmission Date: 20220423
  Serious: Yes (Other)
  Sender: FDA-Public Use
  Company Number: US-SHIRE-US201842939

PATIENT
  Age: 47 Year
  Sex: Female

DRUGS (6)
  1. PARATHYROID HORMONE [Suspect]
     Active Substance: PARATHYROID HORMONE
     Indication: Hypoparathyroidism
     Dosage: 100 MICROGRAM, QD
     Route: 058
     Dates: start: 20151203
  2. PARATHYROID HORMONE [Suspect]
     Active Substance: PARATHYROID HORMONE
     Indication: Hypoparathyroidism
     Dosage: 100 MICROGRAM, QD
     Route: 058
     Dates: start: 20151203
  3. PARATHYROID HORMONE [Suspect]
     Active Substance: PARATHYROID HORMONE
     Indication: Hypoparathyroidism
     Dosage: 100 MICROGRAM, QD
     Route: 058
     Dates: start: 20151203
  4. PARATHYROID HORMONE [Suspect]
     Active Substance: PARATHYROID HORMONE
     Indication: Blood parathyroid hormone
     Dosage: 100 MICROGRAM, QD
     Route: 058
     Dates: start: 20220209
  5. PARATHYROID HORMONE [Suspect]
     Active Substance: PARATHYROID HORMONE
     Indication: Blood parathyroid hormone
     Dosage: 100 MICROGRAM, QD
     Route: 058
     Dates: start: 20220209
  6. PARATHYROID HORMONE [Suspect]
     Active Substance: PARATHYROID HORMONE
     Indication: Blood parathyroid hormone
     Dosage: 100 MICROGRAM, QD
     Route: 058
     Dates: start: 20220209

REACTIONS (7)
  - Hypocalcaemia [Not Recovered/Not Resolved]
  - Blood calcium abnormal [Recovered/Resolved]
  - Palpitations [Not Recovered/Not Resolved]
  - Anxiety [Not Recovered/Not Resolved]
  - Drug ineffective [Unknown]
  - Device issue [Unknown]
  - Inappropriate schedule of product administration [Recovered/Resolved]

NARRATIVE: CASE EVENT DATE: 20181116
